FAERS Safety Report 7092997-9 (Version None)
Quarter: 2010Q4

REPORT INFORMATION
  Report Type: 
  Country: None (occurrence: None)
  Receive Date: 20101110
  Receipt Date: 20080917
  Transmission Date: 20110411
  Serious: No
  Sender: FDA-Public Use
  Company Number: US-KINGPHARMUSA00001-K200801090

PATIENT
  Sex: Female
  Weight: 93.424 kg

DRUGS (1)
  1. BICILLIN L-A [Suspect]
     Indication: SYPHILIS
     Dosage: 2400000 IU, UNK
     Route: 030

REACTIONS (2)
  - NO ADVERSE EVENT [None]
  - POOR QUALITY DRUG ADMINISTERED [None]
